FAERS Safety Report 4691777-9 (Version None)
Quarter: 2005Q2

REPORT INFORMATION
  Report Type: 
  Country: None (occurrence: None)
  Receive Date: 20050608
  Receipt Date: 20040624
  Transmission Date: 20051028
  Serious: Yes (Other)
  Sender: FDA-Public Use
  Company Number: 362236

PATIENT
  Sex: Female
  Weight: 3 kg

DRUGS (2)
  1. ACCUTANE [Suspect]
     Dosage: ORAL
     Route: 048
     Dates: start: 20021001, end: 20021204
  2. ORAL CONTRACEPTIVE PILL (ORAL CONTRACEPTIVE NOS) [Concomitant]

REACTIONS (3)
  - CEPHALO-PELVIC DISPROPORTION [None]
  - LIVE BIRTH [None]
  - PROLONGED LABOUR [None]
